FAERS Safety Report 17481897 (Version 2)
Quarter: 2020Q1

REPORT INFORMATION
  Report Type: Spontaneous
  Country: FR (occurrence: FR)
  Receive Date: 20200302
  Receipt Date: 20200312
  Transmission Date: 20200409
  Serious: Yes (Hospitalization, Other)
  Sender: FDA-Public Use
  Company Number: FR-SUN PHARMACEUTICAL INDUSTRIES LTD-2020RR-238573

PATIENT
  Age: 85 Year
  Sex: Female
  Weight: 58 kg

DRUGS (1)
  1. ALENDRONIC ACID [Suspect]
     Active Substance: ALENDRONIC ACID
     Indication: OSTEOPOROSIS
     Dosage: UNKNOWN
     Route: 065
     Dates: start: 2007

REACTIONS (5)
  - Arthralgia [Unknown]
  - Fall [Recovered/Resolved]
  - Pain in extremity [Unknown]
  - Atypical femur fracture [Recovered/Resolved]
  - Blood 25-hydroxycholecalciferol decreased [Unknown]

NARRATIVE: CASE EVENT DATE: 201803
